FAERS Safety Report 23035838 (Version 1)
Quarter: 2023Q4

REPORT INFORMATION
  Report Type: Spontaneous
  Country: FR (occurrence: FR)
  Receive Date: 20231006
  Receipt Date: 20231006
  Transmission Date: 20240110
  Serious: Yes (Life-Threatening, Other)
  Sender: FDA-Public Use
  Company Number: FR-AFSSAPS-AVMP2023000346

PATIENT
  Age: 19 Year
  Sex: Male

DRUGS (2)
  1. TRAMADOL [Suspect]
     Active Substance: TRAMADOL\TRAMADOL HYDROCHLORIDE
     Indication: Product used for unknown indication
     Dosage: LE 15/08/2023 : 20AINE DE COMPRIM?S ? VIS?E R?CR?ATIVE
     Route: 048
     Dates: start: 202301, end: 20230815
  2. CANNABIS SATIVA SUBSP. INDICA TOP [Concomitant]
     Active Substance: CANNABIS SATIVA SUBSP. INDICA TOP
     Indication: Product used for unknown indication
     Dosage: QUOTIDIEN
     Route: 065
     Dates: start: 2023

REACTIONS (4)
  - Pneumonia aspiration [Recovered/Resolved]
  - Hepatic cytolysis [Recovered/Resolved]
  - Coma [Recovered/Resolved]
  - Drug abuse [Unknown]

NARRATIVE: CASE EVENT DATE: 20230815
